FAERS Safety Report 6080862-5 (Version None)
Quarter: 2009Q1

REPORT INFORMATION
  Report Type: 
  Country: None (occurrence: None)
  Receive Date: 20090217
  Receipt Date: 20090204
  Transmission Date: 20090719
  Serious: Yes (Other)
  Sender: FDA-Public Use
  Company Number: TR-SANOFI-SYNTHELABO-A01200901266

PATIENT
  Age: 66 Year
  Sex: Male

DRUGS (6)
  1. CAPECITABINE [Concomitant]
     Dosage: DAYS 1-14 OF A 3 WEEK CYCLE 2500 MG/M2
     Dates: end: 20040601
  2. RALTITREXED [Concomitant]
     Dosage: 3 MG/M2
  3. FLUOROURACIL [Concomitant]
     Dosage: 400 MG/M2 IV BOLUS FOLLOWED BY 600 MGM2 INFUSION OVER 22 HOURS (DAYS 1,2 AND 15,16 OF 28)
     Route: 042
  4. LEUCOVORIN CALCIUM [Concomitant]
     Indication: RECTAL CANCER
     Dosage: DAYS1 AND 15 OF A 28 DAY CYCLE 200 MG/M2
  5. IRINOTECAN HCL [Suspect]
     Dosage: DAYS 1 AND 15 OF A 28 DAY CYCLE 180 MG/M2
  6. ELOXATIN [Suspect]
     Indication: RECTAL CANCER
     Dosage: 130 MG/M2
     Route: 041
     Dates: start: 20040601, end: 20040601

REACTIONS (1)
  - CHRONIC MYELOID LEUKAEMIA [None]
